FAERS Safety Report 13243139 (Version 1)
Quarter: 2017Q1

REPORT INFORMATION
  Report Type: Spontaneous
  Country: US (occurrence: US)
  Receive Date: 20170217
  Receipt Date: 20170217
  Transmission Date: 20170428
  Serious: No
  Sender: FDA-Public Use
  Company Number: US-NOVOPROD-502734

PATIENT
  Age: 46 Year
  Sex: Male
  Weight: 134.72 kg

DRUGS (1)
  1. VICTOZA [Suspect]
     Active Substance: LIRAGLUTIDE
     Indication: PRODUCT USED FOR UNKNOWN INDICATION
     Route: 058

REACTIONS (3)
  - Glycosylated haemoglobin decreased [Unknown]
  - Weight decreased [Unknown]
  - Blood glucose decreased [Unknown]
